FAERS Safety Report 9213442 (Version 1)
Quarter: 2013Q2

REPORT INFORMATION
  Report Type: Spontaneous
  Country: IT (occurrence: IT)
  Receive Date: 20130405
  Receipt Date: 20130405
  Transmission Date: 20140414
  Serious: Yes (Disabling, Other)
  Sender: FDA-Public Use
  Company Number: IT-009507513-1302ITA002760

PATIENT
  Age: 87 Year
  Sex: Male

DRUGS (4)
  1. FOSAVANCE [Suspect]
     Indication: OSTEOPOROSIS
     Dosage: UNK UNK, QW
     Route: 048
     Dates: start: 20050701, end: 20130123
  2. TIKLID [Concomitant]
  3. NATRILIX [Concomitant]
     Route: 048
  4. MOBIC [Concomitant]
     Indication: TOOTHACHE
     Dosage: UNK
     Dates: start: 201212, end: 201301

REACTIONS (1)
  - Osteonecrosis [Unknown]
